FAERS Safety Report 4621518-2 (Version None)
Quarter: 2005Q1

REPORT INFORMATION
  Report Type: 
  Country: None (occurrence: None)
  Receive Date: 20050328
  Receipt Date: 20031125
  Transmission Date: 20050727
  Serious: No
  Sender: FDA-Public Use
  Company Number: 9995

PATIENT
  Age: 50 Year
  Sex: Female

DRUGS (4)
  1. METHOTREXATE [Suspect]
     Dosage: 4 MG WEEKLY;
     Dates: start: 20031027
  2. BUCILLAMINE [Concomitant]
  3. PREDNISOLONE [Concomitant]
  4. SULINDAC [Concomitant]

REACTIONS (2)
  - HYPOAESTHESIA [None]
  - MUSCLE RIGIDITY [None]
